FAERS Safety Report 21365672 (Version 2)
Quarter: 2022Q4

REPORT INFORMATION
  Report Type: Report from Study
  Country: US (occurrence: None)
  Receive Date: 20220922
  Receipt Date: 20221229
  Transmission Date: 20230112
  Serious: Yes (Other)
  Sender: FDA-Public Use
  Company Number: US-Merck Healthcare KGaA-9282466

PATIENT
  Age: 62 Year
  Sex: Male

DRUGS (2)
  1. MAVENCLAD [Suspect]
     Active Substance: CLADRIBINE
     Indication: Multiple sclerosis
     Dosage: YEAR ONE MONTH ONE THERAPY
     Route: 048
     Dates: start: 20211031, end: 2021
  2. MAVENCLAD [Suspect]
     Active Substance: CLADRIBINE
     Dosage: YEAR ONE MONTH TWO THERAPY
     Route: 048
     Dates: start: 2021, end: 20211205

REACTIONS (8)
  - Pancreatic carcinoma [Unknown]
  - White blood cell count decreased [Unknown]
  - Nephrolithiasis [Unknown]
  - Lymphocyte count decreased [Unknown]
  - Multiple sclerosis [Unknown]
  - Cough [Recovered/Resolved]
  - Exposure to communicable disease [Unknown]
  - Exposure to toxic agent [Unknown]

NARRATIVE: CASE EVENT DATE: 20210101
